FAERS Safety Report 23195008 (Version 1)
Quarter: 2023Q4

REPORT INFORMATION
  Report Type: Spontaneous
  Country: US (occurrence: US)
  Receive Date: 20231117
  Receipt Date: 20231117
  Transmission Date: 20240109
  Serious: Yes (Other)
  Sender: FDA-Public Use
  Company Number: US-JNJFOC-20231130991

PATIENT
  Age: 77 Year
  Sex: Female

DRUGS (5)
  1. OPSUMIT [Suspect]
     Active Substance: MACITENTAN
     Indication: Product used for unknown indication
     Route: 065
  2. TYVASO [Suspect]
     Active Substance: TREPROSTINIL
     Indication: Pulmonary arterial hypertension
     Route: 055
     Dates: start: 202310
  3. TYVASO [Suspect]
     Active Substance: TREPROSTINIL
     Route: 055
     Dates: start: 202310
  4. TYVASO [Suspect]
     Active Substance: TREPROSTINIL
     Route: 055
     Dates: start: 202310
  5. TYVASO [Suspect]
     Active Substance: TREPROSTINIL
     Route: 055

REACTIONS (7)
  - Pneumonia [Unknown]
  - Arthritis [Unknown]
  - Arthralgia [Not Recovered/Not Resolved]
  - Headache [Unknown]
  - Dizziness postural [Unknown]
  - Chest discomfort [Unknown]
  - Dyspnoea exertional [Not Recovered/Not Resolved]

NARRATIVE: CASE EVENT DATE: 20231001
